FAERS Safety Report 9269986 (Version 2)
Quarter: 2013Q2

REPORT INFORMATION
  Report Type: Report from Study
  Country: CA (occurrence: CA)
  Receive Date: 20130503
  Receipt Date: 20130606
  Transmission Date: 20140414
  Serious: Yes (Other)
  Sender: FDA-Public Use
  Company Number: CA-ABBOTT-13P-028-1084171-00

PATIENT
  Age: 41 Year
  Sex: Male
  Weight: 131.66 kg

DRUGS (8)
  1. HUMIRA [Suspect]
     Indication: ANKYLOSING SPONDYLITIS
     Route: 058
     Dates: start: 20120628
  2. HUMIRA [Suspect]
     Route: 058
     Dates: start: 20130429
  3. SYNTHROID [Concomitant]
     Indication: BASEDOW^S DISEASE
     Dosage: 100 MCG AND 125
     Route: 048
  4. OMEGA 3 [Concomitant]
     Indication: SUPPLEMENTATION THERAPY
     Route: 048
  5. CYMBALTA [Concomitant]
     Indication: PAIN
     Route: 048
  6. ZOPICLONE [Concomitant]
     Indication: SLEEP DISORDER THERAPY
     Route: 048
  7. CELEBREX [Concomitant]
     Indication: PAIN
     Route: 048
  8. MORPHINE [Concomitant]
     Indication: PAIN

REACTIONS (2)
  - Eye swelling [Unknown]
  - Mass [Recovered/Resolved]
